FAERS Safety Report 18232254 (Version 1)
Quarter: 2020Q3

REPORT INFORMATION
  Report Type: Spontaneous
  Country: US (occurrence: US)
  Receive Date: 20200904
  Receipt Date: 20200904
  Transmission Date: 20201103
  Serious: Yes (Other)
  Sender: FDA-Public Use
  Company Number: US-AMERICAN REGENT INC-2019001838

PATIENT
  Age: 46 Year
  Sex: Female
  Weight: 44.17 kg

DRUGS (1)
  1. INJECTAFER [Suspect]
     Active Substance: FERRIC CARBOXYMALTOSE
     Indication: ANAEMIA
     Dosage: 750 MILLIGRAM, SINGLE, IN 150 ML NORMAL SALINE
     Route: 042
     Dates: start: 20190510, end: 20190510

REACTIONS (3)
  - Hypophosphataemia [Recovered/Resolved]
  - Incorrect dosage administered [Unknown]
  - Product use in unapproved indication [Unknown]

NARRATIVE: CASE EVENT DATE: 20190510
